FAERS Safety Report 22376783 (Version 2)
Quarter: 2023Q2

REPORT INFORMATION
  Report Type: Spontaneous
  Country: US (occurrence: US)
  Receive Date: 20230528
  Receipt Date: 20230602
  Transmission Date: 20230722
  Serious: Yes (Death, Other)
  Sender: FDA-Public Use
  Company Number: US-BRISTOL-MYERS SQUIBB COMPANY-2023-074083

PATIENT
  Age: 76 Year
  Sex: Male
  Weight: 63.96 kg

DRUGS (1)
  1. REVLIMID [Suspect]
     Active Substance: LENALIDOMIDE
     Indication: Plasma cell myeloma
     Dosage: FREQ : ON DAYS 1-21 (21 DAY CYCLE)
     Route: 048
     Dates: start: 202303

REACTIONS (1)
  - Death [Fatal]

NARRATIVE: CASE EVENT DATE: 20230428
